FAERS Safety Report 5709553 (Version 3)
Quarter: 2013Q4

REPORT INFORMATION
  Report Type: Spontaneous
  Country: JP (occurrence: None)
  Receive Date: 20041222
  Receipt Date: 20131211
  Transmission Date: 20140711
  Serious: Yes (Life-Threatening, Disabling, Other)
  Sender: FDA-Public Use
  Company Number: 2004JP002212

PATIENT
  Age: 2 Year
  Sex: Male
  Weight: 29.1 kg

DRUGS (5)
  1. PROGRAF [Suspect]
     Indication: LIVER TRANSPLANT
     Dates: start: 19960918
  2. ZOVIRAX [Concomitant]
  3. BACTRAMIN     (SULFAMETHOXAZOLE, TRIMETHOPRIM) GRANULE [Concomitant]
  4. CELLCEPT [Concomitant]
  5. BIOFERMIN R (STREPTOCOCCUS FAECALIS) [Concomitant]

REACTIONS (19)
  - Encephalopathy [None]
  - Convulsion [None]
  - Depressed level of consciousness [None]
  - Respiratory arrest [None]
  - Mental retardation [None]
  - Nuclear magnetic resonance imaging brain abnormal [None]
  - Large intestine perforation [None]
  - Diarrhoea [None]
  - Amnesia [None]
  - Attention deficit/hyperactivity disorder [None]
  - Drug level increased [None]
  - Affect lability [None]
  - Vomiting [None]
  - Hypometabolism [None]
  - Epstein-Barr virus infection [None]
  - Hallucination, auditory [None]
  - Complications of transplanted liver [None]
  - Liver transplant rejection [None]
  - Pain [None]
